FAERS Safety Report 22152794 (Version 1)
Quarter: 2023Q1

REPORT INFORMATION
  Report Type: Spontaneous
  Country: JP (occurrence: JP)
  Receive Date: 20230329
  Receipt Date: 20230329
  Transmission Date: 20230418
  Serious: Yes (Other)
  Sender: FDA-Public Use
  Company Number: JP-APIL-2309361US

PATIENT
  Sex: Male

DRUGS (3)
  1. ALPHAGAN P [Suspect]
     Active Substance: BRIMONIDINE TARTRATE
     Indication: Exfoliation glaucoma
     Dosage: 2 DROP
     Route: 047
     Dates: start: 201306, end: 20230203
  2. LUMIGAN [Suspect]
     Active Substance: BIMATOPROST
     Indication: Exfoliation glaucoma
     Dosage: 1 DROP
     Route: 047
     Dates: start: 20161017
  3. COSOPT [Concomitant]
     Active Substance: DORZOLAMIDE HYDROCHLORIDE\TIMOLOL MALEATE
     Indication: Exfoliation glaucoma
     Dosage: 2 DROP/DAY
     Route: 047
     Dates: start: 20161017

REACTIONS (1)
  - Corneal infiltrates [Recovered/Resolved]

NARRATIVE: CASE EVENT DATE: 20230203
